FAERS Safety Report 9453640 (Version 1)
Quarter: 2013Q1

REPORT INFORMATION
  Report Type: Not Available
  Country: US (occurrence: US)
  Receive Date: 20120321
  Receipt Date: 20120321
  Transmission Date: 20140127
  Serious: Yes (Other)
  Sender: FDA-Public Use
  Company Number: US-LUNDBECK-DKLU1075300

PATIENT
  Age: 28 None
  Sex: Male

DRUGS (7)
  1. SABRIL     (TABLET) [Suspect]
     Indication: CONVULSION
     Route: 048
     Dates: start: 201006
  2. SABRIL     (TABLET) [Suspect]
     Indication: COMPLEX PARTIAL SEIZURES
     Route: 048
     Dates: start: 20100617
  3. SABRIL     (TABLET) [Suspect]
     Route: 048
     Dates: start: 20100617
  4. SABRIL     (TABLET) [Suspect]
     Dosage: WEANING REGIMEN-DECREASE BY 1 TABLET PER WEEK
     Route: 048
     Dates: start: 20120802
  5. CELEXA TABLETS [Concomitant]
     Indication: PRODUCT USED FOR UNKNOWN INDICATION
  6. LAMOTRIGINE [Concomitant]
     Indication: PRODUCT USED FOR UNKNOWN INDICATION
  7. LACOSAMIDE [Concomitant]
     Indication: PRODUCT USED FOR UNKNOWN INDICATION

REACTIONS (5)
  - Visual field defect [Not Recovered/Not Resolved]
  - Convulsion [Recovered/Resolved]
  - Nasopharyngitis [Unknown]
  - Confusional state [Recovered/Resolved]
  - Insomnia [Recovered/Resolved]
